FAERS Safety Report 23700391 (Version 1)
Quarter: 2024Q2

REPORT INFORMATION
  Report Type: Spontaneous
  Country: US (occurrence: US)
  Receive Date: 20240403
  Receipt Date: 20240403
  Transmission Date: 20240716
  Serious: Yes (Life-Threatening, Hospitalization, Other)
  Sender: FDA-Public Use
  Company Number: US-HIKMA PHARMACEUTICALS USA INC.-US-H14001-24-02536

PATIENT
  Age: 13 Year
  Sex: Male

DRUGS (14)
  1. METHYLPREDNISOLONE [Suspect]
     Active Substance: METHYLPREDNISOLONE
     Dosage: 16 MILLIGRAM, QD, DECREASED BY 50% TO 16 MG DAILY
     Route: 042
  2. METHYLPREDNISOLONE [Suspect]
     Active Substance: METHYLPREDNISOLONE
     Dosage: 16 MILLIGRAM, Q12H
     Route: 042
  3. METHYLPREDNISOLONE [Suspect]
     Active Substance: METHYLPREDNISOLONE
     Indication: Colitis
     Dosage: 40 MILLIGRAM
     Route: 042
  4. PREDNISONE [Suspect]
     Active Substance: PREDNISONE
     Dosage: 20 MILLIGRAM, QD
     Route: 048
  5. PREDNISONE [Suspect]
     Active Substance: PREDNISONE
     Dosage: 40 MILLIGRAM, QD
     Route: 048
  6. PREDNISONE [Suspect]
     Active Substance: PREDNISONE
     Indication: Colitis
     Dosage: UNK
     Route: 065
  7. UPADACITINIB [Suspect]
     Active Substance: UPADACITINIB
     Dosage: 30 MILLIGRAM, QD
     Route: 065
  8. UPADACITINIB [Suspect]
     Active Substance: UPADACITINIB
     Indication: Colitis
     Dosage: 45 MG DAILY FOR 8 WEEKS
     Route: 065
  9. UPADACITINIB [Suspect]
     Active Substance: UPADACITINIB
     Dosage: 45 MILLIGRAM, QD, ESCALATION
     Route: 065
  10. UPADACITINIB [Suspect]
     Active Substance: UPADACITINIB
     Dosage: 45 MILLIGRAM, QD, RESTARTED ON UPADACITINIB 45 MG DAILY
     Route: 058
  11. USTEKINUMAB [Suspect]
     Active Substance: USTEKINUMAB
     Indication: Colitis
     Dosage: 260 MILLIGRAM, SINGLE, IV INDUCTION
     Route: 042
  12. USTEKINUMAB [Suspect]
     Active Substance: USTEKINUMAB
     Dosage: 90 MILLIGRAM, 4W, DOSING FREQUENCY WAS DECREASED
     Route: 058
  13. USTEKINUMAB [Suspect]
     Active Substance: USTEKINUMAB
     Dosage: 90 MILLIGRAM, 8 WEEKS LATER
     Route: 058
  14. VEDOLIZUMAB [Suspect]
     Active Substance: VEDOLIZUMAB
     Indication: Colitis
     Dosage: 300 MILLIGRAM, INDUCTION DOSE
     Route: 042

REACTIONS (3)
  - Cytomegalovirus colitis [Recovering/Resolving]
  - Hypoalbuminaemia [Recovering/Resolving]
  - Alanine aminotransferase increased [Recovered/Resolved]
